FAERS Safety Report 17610229 (Version 3)
Quarter: 2022Q1

REPORT INFORMATION
  Report Type: Report from Study
  Country: US (occurrence: US)
  Receive Date: 20200401
  Receipt Date: 20220120
  Transmission Date: 20220423
  Serious: Yes (Hospitalization)
  Sender: FDA-Public Use
  Company Number: US-ABBVIE-20P-163-3334380-00

PATIENT
  Age: 62 Year
  Sex: Female
  Weight: 84.5 kg

DRUGS (14)
  1. VENETOCLAX [Suspect]
     Active Substance: VENETOCLAX
     Indication: Chronic lymphocytic leukaemia
     Dosage: ON DAYS 1-7 OF RAMP UP DOSING PORTION OF STUDY, THEN DAILY POST RAMP-UP
     Route: 048
     Dates: start: 20190312, end: 20200309
  2. OBINUTUZUMAB [Suspect]
     Active Substance: OBINUTUZUMAB
     Indication: Chronic lymphocytic leukaemia
     Dosage: CYCLE 1 DAY 1
     Route: 042
     Dates: start: 20190114, end: 20190114
  3. OBINUTUZUMAB [Suspect]
     Active Substance: OBINUTUZUMAB
     Dosage: CYCLE 1 DAY 2
     Route: 042
     Dates: start: 20190115, end: 20190115
  4. OBINUTUZUMAB [Suspect]
     Active Substance: OBINUTUZUMAB
     Dosage: DAYS 8 AND DAYS 15 OF CYCLE 1
     Route: 042
     Dates: start: 20190122, end: 20190129
  5. OBINUTUZUMAB [Suspect]
     Active Substance: OBINUTUZUMAB
     Dosage: DAY 1 OF CYCLE 2; FOR CYCLES 3  6
     Route: 042
     Dates: start: 20190211, end: 20190730
  6. BENDAMUSTINE [Suspect]
     Active Substance: BENDAMUSTINE
     Indication: Chronic lymphocytic leukaemia
     Dosage: DAYS 1 AND 2 OF EACH 28 DAY CYCLE
     Route: 042
     Dates: start: 20190114, end: 20190212
  7. PRAVASTATIN [Concomitant]
     Active Substance: PRAVASTATIN
     Indication: Hypercholesterolaemia
     Route: 048
     Dates: start: 20160808
  8. FLUOXETINE [Concomitant]
     Active Substance: FLUOXETINE HYDROCHLORIDE
     Indication: Anxiety
     Route: 048
     Dates: start: 20160808
  9. DULOXETINE [Concomitant]
     Active Substance: DULOXETINE
     Indication: Anxiety
     Route: 048
     Dates: start: 20171113
  10. CLONAZEPAM [Concomitant]
     Active Substance: CLONAZEPAM
     Indication: Anxiety
     Route: 048
     Dates: start: 20160921
  11. RANITIDINE [Concomitant]
     Active Substance: RANITIDINE
     Indication: Dyspepsia
     Route: 048
     Dates: start: 20190211
  12. ACYCLOVIR [Concomitant]
     Active Substance: ACYCLOVIR
     Indication: Antiviral prophylaxis
     Route: 048
     Dates: start: 20190111
  13. BACTRIM [Concomitant]
     Active Substance: SULFAMETHOXAZOLE\TRIMETHOPRIM
     Indication: Infection prophylaxis
     Dosage: 800-160MG BID SAT + SUN
     Route: 048
     Dates: start: 20190112
  14. LORATADINE [Concomitant]
     Active Substance: LORATADINE
     Indication: Sinus congestion
     Route: 048
     Dates: start: 20190226

REACTIONS (1)
  - Pneumonia [Recovered/Resolved]

NARRATIVE: CASE EVENT DATE: 20200320
